FAERS Safety Report 4950321-9 (Version None)
Quarter: 2006Q1

REPORT INFORMATION
  Report Type: 
  Country: None (occurrence: None)
  Receive Date: 20060322
  Receipt Date: 20060118
  Transmission Date: 20060701
  Serious: Yes (Other)
  Sender: FDA-Public Use
  Company Number: PHNR2006AU00487

PATIENT
  Age: 69 Year
  Sex: Female

DRUGS (3)
  1. RIVOTRIL [Concomitant]
     Indication: EPILEPSY
     Dosage: 2.5 MG, BID
  2. RIVOTRIL [Concomitant]
     Dosage: 1.5 DF DAILY
  3. FEMARA [Suspect]
     Indication: BREAST CANCER
     Dosage: 1 DF, QD
     Route: 048
     Dates: start: 20030301

REACTIONS (7)
  - CARDIAC DISORDER [None]
  - INGUINAL HERNIA [None]
  - PALPITATIONS [None]
  - PSYCHIATRIC SYMPTOM [None]
  - RIB FRACTURE [None]
  - SKIN ATROPHY [None]
  - WEIGHT INCREASED [None]
